FAERS Safety Report 8926470 (Version 2)
Quarter: 2012Q4

REPORT INFORMATION
  Report Type: 
  Country: GB (occurrence: GB)
  Receive Date: 20121126
  Receipt Date: 20121210
  Transmission Date: 20130627
  Serious: Yes (Other)
  Sender: FDA-Public Use
  Company Number: GB-JNJFOC-20121111959

PATIENT
  Sex: Male

DRUGS (2)
  1. PALEXIA [Suspect]
     Indication: PAIN
     Route: 048
  2. PALEXIA [Suspect]
     Indication: PAIN
     Dosage: 6 tablets at once
     Route: 048

REACTIONS (2)
  - Incorrect dose administered [Recovered/Resolved]
  - Intentional drug misuse [Recovered/Resolved]
